FAERS Safety Report 7100174-8 (Version None)
Quarter: 2010Q4

REPORT INFORMATION
  Report Type: 
  Country: None (occurrence: None)
  Receive Date: 20101112
  Receipt Date: 20100726
  Transmission Date: 20110411
  Serious: No
  Sender: FDA-Public Use
  Company Number: A0871412A

PATIENT
  Age: 55 Year
  Sex: Male

DRUGS (2)
  1. CARVEDILOL [Suspect]
     Indication: HYPERTENSION
     Dosage: 12.5MG TWICE PER DAY
     Route: 048
     Dates: start: 20090701
  2. AMLODIPINE [Concomitant]

REACTIONS (8)
  - ABDOMINAL DISTENSION [None]
  - AMNESIA [None]
  - BLOOD PRESSURE INADEQUATELY CONTROLLED [None]
  - FEELING ABNORMAL [None]
  - HYPOAESTHESIA [None]
  - OEDEMA PERIPHERAL [None]
  - VISION BLURRED [None]
  - WEIGHT INCREASED [None]
